FAERS Safety Report 4945713-8 (Version None)
Quarter: 2006Q1

REPORT INFORMATION
  Report Type: 
  Country: None (occurrence: None)
  Receive Date: 20060117
  Receipt Date: 20050429
  Transmission Date: 20060701
  Serious: Yes (Hospitalization)
  Sender: FDA-Public Use
  Company Number: A03200501279

PATIENT
  Age: 79 Year
  Sex: Female
  Weight: 74.83 kg

DRUGS (1)
  1. PLAVIX [Suspect]
     Indication: THROMBOSIS PROPHYLAXIS
     Dosage: 75 MG QD - ORAL
     Route: 048

REACTIONS (5)
  - ANGINA PECTORIS [None]
  - DRUG INEFFECTIVE [None]
  - DRY MOUTH [None]
  - DYSGEUSIA [None]
  - TEMPERATURE INTOLERANCE [None]
